FAERS Safety Report 8416273-4 (Version None)
Quarter: 2012Q2

REPORT INFORMATION
  Report Type: 
  Country: None (occurrence: None)
  Receive Date: 20120606
  Receipt Date: 20120524
  Transmission Date: 20120825
  Serious: Yes (Hospitalization, Other)
  Sender: FDA-Public Use
  Company Number: DE-ELI_LILLY_AND_COMPANY-DE201201007171

PATIENT
  Age: 55 Year
  Sex: Female

DRUGS (4)
  1. ZYPREXA [Suspect]
     Indication: DEPRESSION
     Dosage: 2.5 MG, EACH MORNING
     Route: 048
  2. DICLOFENAC SODIUM [Concomitant]
     Dosage: 75 MG, EACH MORNING
  3. DICLOFENAC SODIUM [Concomitant]
     Dosage: 75 MG, EACH EVENING
  4. DIPYRONE TAB [Concomitant]
     Dosage: UNK, PRN

REACTIONS (3)
  - BREAST CANCER IN SITU [None]
  - BREAST CANCER STAGE I [None]
  - OFF LABEL USE [None]
